FAERS Safety Report 7100037-8 (Version None)
Quarter: 2010Q4

REPORT INFORMATION
  Report Type: 
  Country: None (occurrence: None)
  Receive Date: 20101112
  Receipt Date: 20100916
  Transmission Date: 20110411
  Serious: No
  Sender: FDA-Public Use
  Company Number: US-BAYER-201021534BCC

PATIENT
  Sex: Female

DRUGS (1)
  1. MIDOL [Suspect]
     Indication: ABDOMINAL DISTENSION
     Dosage: BOTTLE COUNT 24S
     Route: 048

REACTIONS (3)
  - ABDOMINAL DISTENSION [None]
  - FATIGUE [None]
  - OEDEMA PERIPHERAL [None]
